FAERS Safety Report 17999433 (Version 1)
Quarter: 2020Q3

REPORT INFORMATION
  Report Type: Spontaneous
  Country: PL (occurrence: PL)
  Receive Date: 20200709
  Receipt Date: 20200709
  Transmission Date: 20201103
  Serious: Yes (Life-Threatening, Hospitalization)
  Sender: FDA-Public Use
  Company Number: NVSC2020PL190604

PATIENT
  Age: 14 Year
  Sex: Male
  Weight: 46 kg

DRUGS (1)
  1. METHOTREXATE. [Suspect]
     Active Substance: METHOTREXATE
     Indication: LYMPHOCYTIC LEUKAEMIA
     Dosage: 5 G/M2
     Route: 042
     Dates: start: 20170814

REACTIONS (2)
  - Acute kidney injury [Unknown]
  - Urinary retention [Unknown]

NARRATIVE: CASE EVENT DATE: 20170815
